FAERS Safety Report 9974151 (Version 1)
Quarter: 2014Q1

REPORT INFORMATION
  Report Type: Report from Study
  Country: US (occurrence: US)
  Receive Date: 20140306
  Receipt Date: 20140306
  Transmission Date: 20141002
  Serious: No
  Sender: FDA-Public Use
  Company Number: US-ABBVIE-13P-163-1155058-00

PATIENT
  Age: 61 Year
  Sex: Female

DRUGS (10)
  1. HUMIRA [Suspect]
     Indication: RHEUMATOID ARTHRITIS
  2. METHOTREXATE [Concomitant]
     Indication: PRODUCT USED FOR UNKNOWN INDICATION
     Dosage: 6 TABLETS EVERY THURSDAY
  3. FOLIC ACID [Concomitant]
     Indication: PRODUCT USED FOR UNKNOWN INDICATION
     Dosage: DAILY
  4. BENICAR [Concomitant]
     Indication: HYPERTENSION
     Dosage: 40-12.5 MILLIGRAMS; IN THE MORNING
  5. CLONIDINE [Concomitant]
     Indication: HYPERTENSION
     Dosage: NIGHT
  6. ONE A DAY 50 PLUS VITAMIN [Concomitant]
     Indication: PRODUCT USED FOR UNKNOWN INDICATION
     Dosage: DAILY
  7. CALCIUM + VITAMIN D [Concomitant]
     Indication: PRODUCT USED FOR UNKNOWN INDICATION
     Dosage: 1 TABLET IN THE MORNING AND 1 TABLET IN THE EVENING; USUALLY ONLY TAKES IT IN THE EVENING
  8. FISH OIL [Concomitant]
     Indication: PRODUCT USED FOR UNKNOWN INDICATION
     Dosage: AT NIGHT DAILY
  9. GROUND FLAX SEED [Concomitant]
     Indication: PRODUCT USED FOR UNKNOWN INDICATION
     Dosage: TABLESPOON IN DECAFFEINATED GREEN TEA
  10. FLEXERIL [Concomitant]
     Indication: PAIN
     Dosage: 2 TABLETS AT SEVEN IN THE EVENING AND 2 TABLETS AT NINE IN THE EVENING

REACTIONS (8)
  - Fibromyalgia [Unknown]
  - Fibromyalgia [Unknown]
  - Injection site pain [Not Recovered/Not Resolved]
  - Rheumatoid arthritis [Unknown]
  - Arthralgia [Unknown]
  - Injection site erythema [Recovering/Resolving]
  - Injection site pain [Recovering/Resolving]
  - Injection site oedema [Recovering/Resolving]
